FAERS Safety Report 5455998-X (Version None)
Quarter: 2007Q3

REPORT INFORMATION
  Report Type: 
  Country: None (occurrence: None)
  Receive Date: 20070918
  Receipt Date: 20070330
  Transmission Date: 20080115
  Serious: Yes (Other)
  Sender: FDA-Public Use
  Company Number: US-ASTRAZENECA-2006UW23755

PATIENT
  Age: 46 Year
  Sex: Female
  Weight: 78.2 kg

DRUGS (3)
  1. SEROQUEL [Suspect]
     Indication: DEPRESSION
     Dosage: 100MG - 200MG
     Route: 048
     Dates: start: 20050101
  2. HALDOL [Concomitant]
  3. ZYPREXA/SYMBYAX [Concomitant]

REACTIONS (5)
  - CATARACT [None]
  - DIABETES MELLITUS [None]
  - GESTATIONAL DIABETES [None]
  - GLYCOSURIA [None]
  - HYPERGLYCAEMIA [None]
